FAERS Safety Report 11773317 (Version 4)
Quarter: 2016Q1

REPORT INFORMATION
  Report Type: Report from Study
  Country: US (occurrence: US)
  Receive Date: 20151124
  Receipt Date: 20160211
  Transmission Date: 20160525
  Serious: Yes (Hospitalization)
  Sender: FDA-Public Use
  Company Number: US-BRISTOL-MYERS SQUIBB COMPANY-BMS-2015-080107

PATIENT
  Age: 51 Year
  Sex: Female
  Weight: 51 kg

DRUGS (3)
  1. NIVOLUMAB [Suspect]
     Active Substance: NIVOLUMAB
     Indication: OVARIAN EPITHELIAL CANCER
     Dosage: 3 MG/KG, Q3WK
     Route: 042
     Dates: start: 20151001
  2. NIVOLUMAB [Suspect]
     Active Substance: NIVOLUMAB
     Dosage: 3 MG/KG, Q2WK
     Route: 042
     Dates: start: 20151022
  3. IPILIMUMAB [Suspect]
     Active Substance: IPILIMUMAB
     Indication: OVARIAN EPITHELIAL CANCER
     Dosage: 1 MG/KG, UNK
     Route: 042
     Dates: start: 20151001

REACTIONS (3)
  - Colitis [Recovering/Resolving]
  - Pain in extremity [Recovering/Resolving]
  - Joint effusion [Recovering/Resolving]

NARRATIVE: CASE EVENT DATE: 20151109
